FAERS Safety Report 4467641-7 (Version None)
Quarter: 2004Q4

REPORT INFORMATION
  Report Type: 
  Country: None (occurrence: None)
  Receive Date: 20041004
  Receipt Date: 20041004
  Transmission Date: 20050328
  Serious: Yes (Hospitalization)
  Sender: FDA-Public Use
  Company Number: None

PATIENT
  Age: 77 Year
  Sex: Female

DRUGS (6)
  1. BELLA DONNA [Suspect]
     Indication: ABDOMINAL PAIN
  2. WARFARIN SODIUM [Suspect]
     Indication: ATRIAL FIBRILLATION
  3. TOPROL-XL [Concomitant]
  4. DIGOXIN [Concomitant]
  5. CARDIZEM CD [Concomitant]
  6. FOSAMAX [Concomitant]

REACTIONS (4)
  - ABDOMINAL PAIN [None]
  - HYPOAESTHESIA [None]
  - INTERNATIONAL NORMALISED RATIO ABNORMAL [None]
  - VISION BLURRED [None]
